FAERS Safety Report 9580512 (Version 1)
Quarter: 2013Q3

REPORT INFORMATION
  Report Type: Spontaneous
  Country: US (occurrence: None)
  Receive Date: 20130916
  Receipt Date: 20130916
  Transmission Date: 20140515
  Serious: Yes (Other)
  Sender: FDA-Public Use
  Company Number: JPI-P-031495

PATIENT
  Age: 31 Year
  Sex: Female
  Weight: 115.67 kg

DRUGS (5)
  1. XYREM (500 MILLIGRAM/MILLILITERS, SOLUTION) (SODIUM OXYBATE) [Suspect]
     Indication: CATAPLEXY
     Dosage: 4 GM (2 GM, 2 IN 1 D), ORAL
     Route: 048
     Dates: start: 20130424, end: 2013
  2. ESTRADIOL [Concomitant]
  3. PROMETRIUM [Concomitant]
  4. CETIRIZINE [Concomitant]
  5. ALBUTEROL [Concomitant]

REACTIONS (4)
  - Respiratory arrest [None]
  - Respiratory depression [None]
  - Hallucination, auditory [None]
  - Vision blurred [None]
